FAERS Safety Report 8178716-3 (Version None)
Quarter: 2012Q1

REPORT INFORMATION
  Report Type: 
  Country: None (occurrence: None)
  Receive Date: 20120301
  Receipt Date: 20120301
  Transmission Date: 20120608
  Serious: Yes (Other)
  Sender: FDA-Public Use
  Company Number: None

PATIENT
  Sex: Female

DRUGS (1)
  1. LEVAQUIN [Suspect]
     Indication: IMPETIGO
     Dosage: 1 TABLET
     Route: 048
     Dates: start: 20120203, end: 20120209

REACTIONS (16)
  - DIZZINESS [None]
  - STAPHYLOCOCCAL INFECTION [None]
  - PAIN IN EXTREMITY [None]
  - TENDON PAIN [None]
  - MIGRAINE [None]
  - PARAESTHESIA [None]
  - ARTHRALGIA [None]
  - DYSGEUSIA [None]
  - CONNECTIVE TISSUE DISORDER [None]
  - PAIN [None]
  - ARTHROPATHY [None]
  - PNEUMONIA [None]
  - FATIGUE [None]
  - HYPOAESTHESIA [None]
  - HEADACHE [None]
  - RASH PUSTULAR [None]
